FAERS Safety Report 26167828 (Version 1)
Quarter: 2025Q4

REPORT INFORMATION
  Report Type: Spontaneous
  Country: US (occurrence: US)
  Receive Date: 20251217
  Receipt Date: 20251217
  Transmission Date: 20260117
  Serious: Yes (Other)
  Sender: VELOXIS PHARMACEUTICALS
  Company Number: US-VELOXIS PHARMACEUTICALS, INC.-2025-VEL-04752

PATIENT
  Sex: Male

DRUGS (2)
  1. TARPEYO [Suspect]
     Active Substance: BUDESONIDE
     Indication: IgA nephropathy
     Dosage: 8 MILLIGRAM, QD(TAKE 2 CAPSULES (8 MG) BY MOUTH ONCE DAILY)
     Route: 061
  2. FILSPARI [Concomitant]
     Active Substance: SPARSENTAN
     Indication: Product used for unknown indication
     Dosage: UNK

REACTIONS (2)
  - Kidney fibrosis [Unknown]
  - Underdose [Unknown]
